FAERS Safety Report 11077973 (Version 1)
Quarter: 2015Q2

REPORT INFORMATION
  Report Type: Spontaneous
  Country: US (occurrence: None)
  Receive Date: 20150429
  Receipt Date: 20150429
  Transmission Date: 20150821
  Serious: Yes (Other)
  Sender: FDA-Public Use
  Company Number: None

PATIENT
  Age: 28 Year
  Sex: Female

DRUGS (1)
  1. MAKENA [Suspect]
     Active Substance: HYDROXYPROGESTERONE CAPROATE
     Indication: PREMATURE LABOUR
     Dosage: 1ML EVERY WEEK
     Route: 030
     Dates: start: 20150417, end: 20150428

REACTIONS (3)
  - Maternal drugs affecting foetus [None]
  - Foetal death [None]
  - Maternal exposure during pregnancy [None]

NARRATIVE: CASE EVENT DATE: 201504
